FAERS Safety Report 4662497-1 (Version None)
Quarter: 2005Q2

REPORT INFORMATION
  Report Type: 
  Country: None (occurrence: None)
  Receive Date: 20050513
  Receipt Date: 20050513
  Transmission Date: 20051028
  Serious: No
  Sender: FDA-Public Use
  Company Number: None

PATIENT
  Age: 16 Year
  Sex: Male
  Weight: 102.3 kg

DRUGS (5)
  1. RISPERDAL [Suspect]
     Dosage: 2 MG.   B.I.D.   ORAL
     Route: 048
     Dates: start: 20010315, end: 20050512
  2. WELLBUTRIN [Suspect]
  3. DEPAKOTE [Concomitant]
  4. ADDERALL 10 [Concomitant]
  5. PAXIL [Concomitant]

REACTIONS (1)
  - DIABETES MELLITUS NON-INSULIN-DEPENDENT [None]
